FAERS Safety Report 8785735 (Version 1)
Quarter: 2012Q4

REPORT INFORMATION
  Report Type: 
  Country: US (occurrence: US)
  Receive Date: 20120914
  Receipt Date: 20120914
  Transmission Date: 20130627
  Serious: Yes (Hospitalization)
  Sender: FDA-Public Use
  Company Number: US-GLAXOSMITHKLINE-A0724398A

PATIENT
  Age: 52 Year
  Sex: Male
  Weight: 136.4 kg

DRUGS (17)
  1. AVANDIA [Suspect]
     Indication: TYPE 2 DIABETES MELLITUS
     Dosage: 8MG Per day
     Route: 048
     Dates: start: 20000322, end: 200709
  2. METFORMIN [Concomitant]
  3. LANTUS [Concomitant]
  4. AMARYL [Concomitant]
  5. TOPROL XL [Concomitant]
  6. LOPRESSOR HCT [Concomitant]
  7. LIPITOR [Concomitant]
  8. VIAGRA [Concomitant]
  9. SYNTHROID [Concomitant]
  10. LEVOTHYROXINE [Concomitant]
  11. LISINOPRIL [Concomitant]
  12. ASPIRIN [Concomitant]
  13. VITAMIN [Concomitant]
  14. NUTRITIONAL SUPPLEMENT [Concomitant]
  15. PLAVIX [Concomitant]
  16. MAXZIDE [Concomitant]
  17. NORVASC [Concomitant]

REACTIONS (4)
  - Myocardial ischaemia [Not Recovered/Not Resolved]
  - Myocardial infarction [Unknown]
  - Arteriosclerosis [Unknown]
  - Coronary artery disease [Unknown]
